FAERS Safety Report 9851874 (Version 3)
Quarter: 2014Q4

REPORT INFORMATION
  Report Type: Report from Study
  Country: CN (occurrence: CN)
  Receive Date: 20140129
  Receipt Date: 20141222
  Transmission Date: 20150529
  Serious: Yes (Hospitalization)
  Sender: FDA-Public Use
  Company Number: CN-ROCHE-1337213

PATIENT
  Age: 60 Year
  Sex: Female
  Weight: 61 kg

DRUGS (21)
  1. GLYCYRRHIZA [Concomitant]
     Active Substance: LICORICE
     Dosage: INDICATION: REDUCE PHLEGM
     Route: 048
     Dates: start: 20140108, end: 20140108
  2. LANSOPRAZOLE. [Concomitant]
     Active Substance: LANSOPRAZOLE
     Route: 065
     Dates: start: 20131219, end: 20131219
  3. OBINUTUZUMAB [Suspect]
     Active Substance: OBINUTUZUMAB
     Indication: DIFFUSE LARGE B-CELL LYMPHOMA
     Dosage: DOSE CONCENTRATION LAST TAKEN: 4MG/ML, DATE OF MOST RECENT DOSE PRIOR TO SAE: 08/JAN/2014?DOSE UNIT
     Route: 042
     Dates: start: 20131127
  4. EUTHYROX [Concomitant]
     Active Substance: LEVOTHYROXINE SODIUM
     Indication: AUTOIMMUNE THYROIDITIS
     Route: 065
     Dates: start: 20131126
  5. PARACETAMOL [Concomitant]
     Active Substance: ACETAMINOPHEN
     Indication: PAIN
     Dosage: INDICATION: ALLEVIATE PAIN
     Route: 065
     Dates: start: 20140108, end: 20140108
  6. PARACETAMOL [Concomitant]
     Active Substance: ACETAMINOPHEN
     Route: 065
     Dates: start: 20131218, end: 20131218
  7. PALONOSETRON HYDROCHLORIDE [Concomitant]
     Active Substance: PALONOSETRON HYDROCHLORIDE
     Route: 065
     Dates: start: 20131219, end: 20131219
  8. PREDNISONE. [Suspect]
     Active Substance: PREDNISONE
     Indication: DIFFUSE LARGE B-CELL LYMPHOMA
     Dosage: DATE OF MOST RECENT DOSE PRIOR TO SAE: 13/JAN/2014?DOSE AS PER PROTOCOL ON D1-D5 OF EACH CYCLE.
     Route: 048
     Dates: start: 20131128
  9. OMEPRAZOLE. [Concomitant]
     Active Substance: OMEPRAZOLE
     Dosage: INDICATION: PROTECT GASTRIC MUCOSA
     Route: 065
     Dates: start: 20140109, end: 20140122
  10. PALONOSETRON HYDROCHLORIDE [Concomitant]
     Active Substance: PALONOSETRON HYDROCHLORIDE
     Dosage: INDICATION: ANTIMETIC
     Route: 065
     Dates: start: 20140109, end: 20140109
  11. VINCRISTINE [Suspect]
     Active Substance: VINCRISTINE
     Indication: DIFFUSE LARGE B-CELL LYMPHOMA
     Dosage: DATE OF MOST RECENT DOSE PRIOR TO SAE: 09/JAN/2014 (2MG)?DOSE AS PER PROTOCOL ON D1 OF EACH CYCLE
     Route: 050
     Dates: start: 20131128
  12. OMEPRAZOLE. [Concomitant]
     Active Substance: OMEPRAZOLE
     Route: 065
     Dates: start: 20131219, end: 20131223
  13. DUPHALAC [Concomitant]
     Active Substance: LACTULOSE
     Dosage: INDICATION: ASTRICTION
     Route: 065
     Dates: start: 20140107, end: 20140107
  14. OMEPRAZOLE. [Concomitant]
     Active Substance: OMEPRAZOLE
     Dosage: INDICATION: PROTECT GASTRIC MUCOSA
     Route: 065
     Dates: start: 20140109
  15. LEVOFLOXACIN. [Concomitant]
     Active Substance: LEVOFLOXACIN
     Dosage: INDICATION: ANTI-INFLAMMATORY AGENT
     Route: 065
     Dates: start: 20140106, end: 20140109
  16. FILGRASTIM [Concomitant]
     Active Substance: FILGRASTIM
     Indication: WHITE BLOOD CELL COUNT INCREASED
     Route: 065
     Dates: start: 20140110, end: 20140110
  17. FILGRASTIM [Concomitant]
     Active Substance: FILGRASTIM
     Indication: LEUKOPENIA
     Route: 065
     Dates: start: 20140117, end: 20140120
  18. CYCLOPHOSPHAMIDE. [Suspect]
     Active Substance: CYCLOPHOSPHAMIDE
     Indication: DIFFUSE LARGE B-CELL LYMPHOMA
     Dosage: DATE OF MOST RECENT DOSE PRIOR TO SAE: 09/JAN/2014 (1230MG)?DOSE AS PER PROTOCOL ON D1 OF EACH CYCLE
     Route: 042
     Dates: start: 20131128
  19. DOXORUBICIN [Suspect]
     Active Substance: DOXORUBICIN
     Indication: DIFFUSE LARGE B-CELL LYMPHOMA
     Dosage: DATE OF MOST RECENT DOSE PRIOR TO SAE: 09/JAN/2014 (82MG)?DOSE AS PER PROTOCOL ON D1 OF EACH CYCLE.
     Route: 042
     Dates: start: 20131128
  20. FILGRASTIM [Concomitant]
     Active Substance: FILGRASTIM
     Indication: NEUTROPENIA
     Route: 065
     Dates: start: 20131220, end: 20131220
  21. PROMETHAZINE HYDROCHLORIDE. [Concomitant]
     Active Substance: PROMETHAZINE HYDROCHLORIDE
     Indication: SEDATION
     Route: 065
     Dates: start: 20140108, end: 20140108

REACTIONS (1)
  - Febrile neutropenia [Recovered/Resolved]

NARRATIVE: CASE EVENT DATE: 20140116
